FAERS Safety Report 9370093 (Version 2)
Quarter: 2013Q3

REPORT INFORMATION
  Report Type: Spontaneous
  Country: US (occurrence: US)
  Receive Date: 20130626
  Receipt Date: 20130925
  Transmission Date: 20140515
  Serious: Yes (Hospitalization)
  Sender: FDA-Public Use
  Company Number: CHPA2013US010305

PATIENT
  Age: 62 Year
  Sex: Female

DRUGS (1)
  1. VOLTAREN GEL [Suspect]
     Indication: ARTHRITIS
     Dosage: 4 G, ABOUT TWICE A DAY
     Route: 061
     Dates: start: 2012, end: 20130617

REACTIONS (9)
  - Fibula fracture [Not Recovered/Not Resolved]
  - Tibia fracture [Not Recovered/Not Resolved]
  - Mobility decreased [Recovering/Resolving]
  - Syncope [Not Recovered/Not Resolved]
  - Dizziness [Recovered/Resolved]
  - Fall [Recovered/Resolved]
  - Pain in extremity [Recovering/Resolving]
  - Underdose [Unknown]
  - Drug administered at inappropriate site [Unknown]
